FAERS Safety Report 4404593-X (Version None)
Quarter: 2004Q3

REPORT INFORMATION
  Report Type: 
  Country: None (occurrence: None)
  Receive Date: 20040720
  Receipt Date: 20040715
  Transmission Date: 20050211
  Serious: Yes (Life-Threatening, Hospitalization)
  Sender: FDA-Public Use
  Company Number: STA-AE-04-MTX-255

PATIENT
  Age: 58 Year
  Sex: Female
  Weight: 58.9676 kg

DRUGS (1)
  1. METHOTREXATE [Suspect]
     Indication: PSORIASIS
     Dosage: 5 MG, THREE TIMES PER WEEK, ORAL
     Route: 048
     Dates: start: 19790101, end: 20040201

REACTIONS (6)
  - ANORECTAL DISORDER [None]
  - BLADDER DISORDER [None]
  - COGNITIVE DISORDER [None]
  - HEADACHE [None]
  - INFECTION [None]
  - MEMORY IMPAIRMENT [None]
